FAERS Safety Report 18646653 (Version 2)
Quarter: 2021Q1

REPORT INFORMATION
  Report Type: Spontaneous
  Country: US (occurrence: US)
  Receive Date: 20201222
  Receipt Date: 20210312
  Transmission Date: 20210419
  Serious: Yes (Hospitalization)
  Sender: FDA-Public Use
  Company Number: US-BIOVITRUM-2020US7654

PATIENT
  Sex: Male
  Weight: 7.71 kg

DRUGS (14)
  1. KEPPRA [Concomitant]
     Active Substance: LEVETIRACETAM
     Dosage: 100 MG/ML SOLUTION
  2. CLONIDINE. [Concomitant]
     Active Substance: CLONIDINE
     Dosage: 0.1MG/24HR PATCH TDWK
  3. SYNAGIS [Suspect]
     Active Substance: PALIVIZUMAB
     Indication: LUNG DISORDER
  4. SYNAGIS [Suspect]
     Active Substance: PALIVIZUMAB
     Indication: PREMATURE BABY
  5. PULMICORT TURBUHALER [Concomitant]
     Active Substance: BUDESONIDE
     Dosage: 0.25MG/2ML AMPUL?NEB
  6. ALBUTEROL SULFATE. [Concomitant]
     Active Substance: ALBUTEROL SULFATE
  7. PANTOPRAZOLE SODIUM. [Concomitant]
     Active Substance: PANTOPRAZOLE SODIUM
  8. SYNAGIS [Suspect]
     Active Substance: PALIVIZUMAB
     Indication: CHRONIC RESPIRATORY DISEASE
     Route: 030
  9. SYNAGIS [Suspect]
     Active Substance: PALIVIZUMAB
     Indication: DEPENDENCE ON RESPIRATOR
  10. SYNAGIS [Suspect]
     Active Substance: PALIVIZUMAB
     Indication: TRACHEOSTOMY
  11. IPRATROPIUM BROMIDE. [Concomitant]
     Active Substance: IPRATROPIUM BROMIDE
  12. MIDAZOLAM. [Concomitant]
     Active Substance: MIDAZOLAM
     Dosage: WITH 0.9% NACL
  13. SODIUM CHLORIDE W/WATER [Concomitant]
  14. AZITHROMYCIN ANHYDROUS. [Concomitant]
     Active Substance: AZITHROMYCIN ANHYDROUS
     Dosage: 100 MG/5ML SUSP RECON

REACTIONS (1)
  - Respiratory syncytial virus infection [Not Recovered/Not Resolved]
